FAERS Safety Report 24731515 (Version 1)
Quarter: 2024Q4

REPORT INFORMATION
  Report Type: Spontaneous
  Country: US (occurrence: None)
  Receive Date: 20241212
  Receipt Date: 20241212
  Transmission Date: 20250115
  Serious: Yes (Other)
  Sender: Public
  Company Number: None

PATIENT
  Age: 3 Year
  Sex: Female
  Weight: 13.95 kg

DRUGS (1)
  1. OSELTAMIVIR [Suspect]
     Active Substance: OSELTAMIVIR
     Indication: Influenza
     Dosage: OTHER QUANTITY : 5 ML;?FREQUENCY : TWICE A DAY;?
     Route: 048
     Dates: start: 20241209, end: 20241211

REACTIONS (3)
  - Abnormal behaviour [None]
  - Aggression [None]
  - Impatience [None]

NARRATIVE: CASE EVENT DATE: 20241210
